FAERS Safety Report 5615723-6 (Version None)
Quarter: 2008Q1

REPORT INFORMATION
  Report Type: 
  Country: None (occurrence: None)
  Receive Date: 20080206
  Receipt Date: 20080205
  Transmission Date: 20080703
  Serious: Yes (Life-Threatening, Hospitalization)
  Sender: FDA-Public Use
  Company Number: US-ASTRAZENECA-2007UW23050

PATIENT
  Age: 47 Year
  Sex: Female
  Weight: 57.1 kg

DRUGS (31)
  1. METOPROLOL SUCCINATE [Suspect]
     Indication: ANGINA PECTORIS
     Route: 048
     Dates: start: 20070718, end: 20070723
  2. METOPROLOL SUCCINATE [Suspect]
     Indication: HYPERTENSION
     Route: 048
     Dates: start: 20070718, end: 20070723
  3. METOPROLOL SUCCINATE [Suspect]
     Indication: CARDIAC FAILURE CONGESTIVE
     Route: 048
     Dates: start: 20070718, end: 20070723
  4. CANGRELOR CODE NOT BROKEN [Suspect]
     Indication: PERCUTANEOUS CORONARY INTERVENTION
  5. CLOPIDOGREL CODE NOT BROKEN [Suspect]
     Indication: PERCUTANEOUS CORONARY INTERVENTION
     Route: 048
  6. GLYCERYL TRINITRATE D [Suspect]
     Indication: ANGINA PECTORIS
     Dates: start: 20070718, end: 20070802
  7. GLYCERYL TRINITRATE D [Suspect]
     Dosage: 10 MCG DRIP PRN
     Route: 042
     Dates: start: 20070719, end: 20070719
  8. ISOSORBIDE MONONITRATE [Suspect]
     Indication: ANGINA PECTORIS
     Route: 048
     Dates: start: 20070718, end: 20070723
  9. ALPRAZOLAM [Suspect]
     Route: 048
     Dates: start: 20070718, end: 20070802
  10. HYDROMORPHONE HCL [Concomitant]
     Dates: start: 20070718, end: 20070727
  11. MIDAZOLAM HYDROCHLORIDE [Concomitant]
     Dates: start: 20070718, end: 20070718
  12. ONDANSETRON [Concomitant]
     Dates: start: 20070718, end: 20070802
  13. INTEGRILIN [Concomitant]
     Dates: start: 20070718, end: 20070718
  14. PHENYLEPHRINE HROCHLORIDE [Concomitant]
     Dates: start: 20070718, end: 20070718
  15. ASPIRIN [Concomitant]
     Dates: start: 20070718
  16. HEPARIN [Concomitant]
     Dates: start: 20070718, end: 20070718
  17. GLYCERYL TRINITRATE [Concomitant]
     Dates: start: 20070718, end: 20070802
  18. LEVOSALBUTAMOL [Concomitant]
     Dates: start: 20070722, end: 20070723
  19. MAGNESIUM SULFATE [Concomitant]
     Dates: start: 20070718, end: 20070718
  20. PROMETHAZINE HCL [Concomitant]
     Dates: start: 20070718, end: 20070718
  21. POTASSIUM CHLORIDE [Concomitant]
     Dates: start: 20070718, end: 20070723
  22. NICOTINE [Concomitant]
     Route: 061
     Dates: start: 20070721, end: 20070802
  23. PETHIDINE [Concomitant]
     Dates: start: 20070718, end: 20070718
  24. KETOROLAC TROMETHAMINE [Concomitant]
     Dates: start: 20070720, end: 20070727
  25. PANTOPRAZOLE [Concomitant]
     Dates: start: 20070718, end: 20070730
  26. SIMVASTATIN [Concomitant]
     Dates: start: 20070719
  27. LIDOCAINE [Concomitant]
     Dates: start: 20070718, end: 20070718
  28. CLOPIDOGREL [Concomitant]
     Dates: start: 20070719, end: 20070721
  29. FUROSEMIDE [Concomitant]
     Dates: start: 20070722, end: 20070722
  30. DILTIAZEM [Concomitant]
     Dates: start: 20070720, end: 20070802
  31. PARACETAMOL [Concomitant]
     Dates: start: 20070718, end: 20070802

REACTIONS (3)
  - ATRIOVENTRICULAR BLOCK [None]
  - CARDIAC ARREST [None]
  - HYPOTENSION [None]
